FAERS Safety Report 4659183-0 (Version None)
Quarter: 2005Q2

REPORT INFORMATION
  Report Type: 
  Country: None (occurrence: None)
  Receive Date: 20050510
  Receipt Date: 20050503
  Transmission Date: 20051028
  Serious: Yes (Death, Hospitalization)
  Sender: FDA-Public Use
  Company Number: 163-20785-05030616

PATIENT
  Age: 46 Year
  Sex: Male

DRUGS (6)
  1. THALOMID [Suspect]
     Indication: MULTIPLE MYELOMA
     Dosage: SEE IMAGE
     Route: 048
     Dates: start: 20050101, end: 20050101
  2. THALOMID [Suspect]
     Indication: MULTIPLE MYELOMA
     Dosage: SEE IMAGE
     Route: 048
     Dates: start: 20050101, end: 20050301
  3. OXYCONTIN [Concomitant]
  4. OXYCODONE (OXYCODONE) [Concomitant]
  5. FLUCONAZOLE [Concomitant]
  6. OXACILLIN [Concomitant]

REACTIONS (6)
  - BACTERIAL INFECTION [None]
  - BRAIN STEM SYNDROME [None]
  - DISEASE PROGRESSION [None]
  - FUNGAL INFECTION [None]
  - PAIN [None]
  - SPINAL CORD COMPRESSION [None]
